FAERS Safety Report 9324667 (Version 1)
Quarter: 2013Q2

REPORT INFORMATION
  Report Type: Spontaneous
  Country: JP (occurrence: JP)
  Receive Date: 20130603
  Receipt Date: 20130603
  Transmission Date: 20140414
  Serious: Yes (Other)
  Sender: FDA-Public Use
  Company Number: JP-GLAXOSMITHKLINE-B0868392A

PATIENT
  Age: 34 Year
  Sex: Female

DRUGS (2)
  1. SERETIDE (50MCG/250MCG) [Suspect]
     Indication: ASTHMA
     Route: 055
     Dates: start: 20130121, end: 20130203
  2. SERETIDE (50MCG/250MCG) [Suspect]
     Indication: ASTHMA
     Route: 055
     Dates: start: 20130204

REACTIONS (5)
  - Caesarean section [Unknown]
  - Premature labour [Unknown]
  - Dysphonia [Recovering/Resolving]
  - Exposure during pregnancy [Unknown]
  - Twin pregnancy [Unknown]
